FAERS Safety Report 7210766-3 (Version None)
Quarter: 2011Q1

REPORT INFORMATION
  Report Type: 
  Country: None (occurrence: None)
  Receive Date: 20110105
  Receipt Date: 20110103
  Transmission Date: 20110831
  Serious: No
  Sender: FDA-Public Use
  Company Number: US-PFIZER INC-US-WYE-H11854709

PATIENT
  Sex: Female

DRUGS (2)
  1. LYRICA [Suspect]
     Dosage: UNK
     Route: 065
     Dates: start: 20080101
  2. EFFEXOR [Suspect]
     Dosage: UNKNOWN
     Route: 065

REACTIONS (4)
  - OEDEMA PERIPHERAL [None]
  - DIZZINESS [None]
  - BRONCHITIS CHRONIC [None]
  - WEIGHT INCREASED [None]
